FAERS Safety Report 25639319 (Version 1)
Quarter: 2025Q3

REPORT INFORMATION
  Report Type: Spontaneous
  Country: EU (occurrence: EU)
  Receive Date: 20250804
  Receipt Date: 20250804
  Transmission Date: 20251021
  Serious: Yes (Death, Hospitalization)
  Sender: MYLAN
  Company Number: EU-ROCHE-10000336267

PATIENT
  Age: 70 Year
  Sex: Female

DRUGS (3)
  1. GEMCITABINE [Suspect]
     Active Substance: GEMCITABINE
     Indication: Diffuse large B-cell lymphoma
  2. OXALIPLATIN [Suspect]
     Active Substance: OXALIPLATIN
     Indication: Diffuse large B-cell lymphoma
  3. COLUMVI [Suspect]
     Active Substance: GLOFITAMAB-GXBM
     Indication: Diffuse large B-cell lymphoma

REACTIONS (3)
  - Sepsis [Fatal]
  - Cardiac disorder [Unknown]
  - Cytokine release syndrome [Unknown]
